FAERS Safety Report 6739773-1 (Version None)
Quarter: 2010Q2

REPORT INFORMATION
  Report Type: 
  Country: None (occurrence: None)
  Receive Date: 20100521
  Receipt Date: 20100511
  Transmission Date: 20101027
  Serious: Yes (Hospitalization)
  Sender: FDA-Public Use
  Company Number: 8046053

PATIENT
  Sex: Female
  Weight: 101 kg

DRUGS (13)
  1. CERTOLIZUMAB PEGOL (CERTOLIZUMAE PEGOL) [Suspect]
     Indication: RHEUMATOID ARTHRITIS
     Dosage: SEE IMAGE
     Route: 058
     Dates: start: 20050531, end: 20060516
  2. CERTOLIZUMAB PEGOL (CERTOLIZUMAE PEGOL) [Suspect]
     Indication: RHEUMATOID ARTHRITIS
     Dosage: SEE IMAGE
     Route: 058
     Dates: start: 20060530, end: 20071113
  3. CERTOLIZUMAB PEGOL (CERTOLIZUMAE PEGOL) [Suspect]
     Indication: RHEUMATOID ARTHRITIS
     Dosage: SEE IMAGE
     Route: 058
     Dates: start: 20071127, end: 20090428
  4. CERTOLIZUMAB PEGOL (CERTOLIZUMAE PEGOL) [Suspect]
     Indication: RHEUMATOID ARTHRITIS
     Dosage: SEE IMAGE
     Route: 058
     Dates: start: 20090526
  5. METHOTREXATE [Concomitant]
  6. MELOXICAM [Concomitant]
  7. METHYLPREDNISOLON /00049601/ [Concomitant]
  8. LOGEST /00000701/ [Concomitant]
  9. OMEPRAZOL /00661203/ [Concomitant]
  10. QUINAPRIL [Concomitant]
  11. SYMBICORT [Concomitant]
  12. VERAPAMIL [Concomitant]
  13. FERROUS SULFATE TAB [Concomitant]

REACTIONS (9)
  - ACINETOBACTER INFECTION [None]
  - BRONCHITIS [None]
  - BRONCHOSPASM [None]
  - CULTURE POSITIVE [None]
  - PLEURAL EFFUSION [None]
  - PLEURISY [None]
  - PNEUMONIA [None]
  - TUBERCULOSIS [None]
  - UTERINE LEIOMYOMA [None]
